FAERS Safety Report 6864621-9 (Version None)
Quarter: 2010Q3

REPORT INFORMATION
  Report Type: 
  Country: None (occurrence: None)
  Receive Date: 20100721
  Receipt Date: 20080419
  Transmission Date: 20110219
  Serious: Yes (Other)
  Sender: FDA-Public Use
  Company Number: US-PFIZER INC-2008027428

PATIENT
  Sex: Male
  Weight: 57.6 kg

DRUGS (4)
  1. CHANTIX [Suspect]
     Indication: SMOKING CESSATION THERAPY
     Dates: start: 20080105, end: 20080126
  2. VITAMIN C [Concomitant]
  3. CALCIUM [Concomitant]
  4. MAGNESIUM [Concomitant]

REACTIONS (7)
  - ABNORMAL DREAMS [None]
  - INSOMNIA [None]
  - MICTURITION URGENCY [None]
  - NEPHROLITHIASIS [None]
  - UNEVALUABLE EVENT [None]
  - WEIGHT INCREASED [None]
  - WRONG TECHNIQUE IN DRUG USAGE PROCESS [None]
